FAERS Safety Report 10195773 (Version 1)
Quarter: 2014Q2

REPORT INFORMATION
  Report Type: Spontaneous
  Country: US (occurrence: None)
  Receive Date: 20140522
  Receipt Date: 20140522
  Transmission Date: 20141212
  Serious: Yes (Hospitalization)
  Sender: FDA-Public Use
  Company Number: 2014-001432

PATIENT
  Age: 35 Year
  Sex: Female

DRUGS (5)
  1. SARAFEM [Suspect]
  2. TRIAMCINOLONE ACETONIDE [Suspect]
     Indication: PRODUCT USED FOR UNKNOWN INDICATION
     Route: 014
  3. LACTULOSE (LACTULOSE) [Concomitant]
  4. ZOLPIDEM (ZOLPIDEM) [Concomitant]
  5. POTASSIUM CHLORIDE (POTASSIUM CHLORIDE) [Concomitant]

REACTIONS (7)
  - Adrenal suppression [None]
  - Peptic ulcer [None]
  - Alkalosis [None]
  - Hypokalaemia [None]
  - Drug level increased [None]
  - Drug interaction [None]
  - Haemoglobin decreased [None]
